FAERS Safety Report 7709522-9 (Version None)
Quarter: 2011Q3

REPORT INFORMATION
  Report Type: 
  Country: None (occurrence: None)
  Receive Date: 20110825
  Receipt Date: 20110822
  Transmission Date: 20111222
  Serious: Yes (Other)
  Sender: FDA-Public Use
  Company Number: CHPA2011DE11302

PATIENT
  Age: 41 Year
  Sex: Female

DRUGS (1)
  1. SCOPOLAMINE [Suspect]
     Indication: MOTION SICKNESS
     Dosage: 1 DF, Q72H
     Route: 062
     Dates: start: 20110806, end: 20110820

REACTIONS (7)
  - DYSSTASIA [None]
  - NAUSEA [None]
  - ABDOMINAL PAIN UPPER [None]
  - VOMITING [None]
  - HEADACHE [None]
  - DIZZINESS [None]
  - BRADYCARDIA [None]
